FAERS Safety Report 8893389 (Version 2)
Quarter: 2012Q4

REPORT INFORMATION
  Report Type: 
  Country: US (occurrence: US)
  Receive Date: 20121108
  Receipt Date: 20121116
  Transmission Date: 20130627
  Serious: Yes (Hospitalization)
  Sender: FDA-Public Use
  Company Number: US-AMGEN-USASP2012070172

PATIENT
  Age: 64 Year
  Sex: Male

DRUGS (1)
  1. ENBREL [Suspect]
     Indication: PSORIASIS
     Dosage: 50 mg, bi weekly
     Dates: start: 20120801

REACTIONS (4)
  - Decreased appetite [Recovered/Resolved]
  - Psoriasis [Recovered/Resolved]
  - Drug effect incomplete [Not Recovered/Not Resolved]
  - Visual acuity reduced [Not Recovered/Not Resolved]
